FAERS Safety Report 20227021 (Version 2)
Quarter: 2022Q1

REPORT INFORMATION
  Report Type: Spontaneous
  Country: JP (occurrence: JP)
  Receive Date: 20211224
  Receipt Date: 20220202
  Transmission Date: 20220424
  Serious: Yes (Other)
  Sender: FDA-Public Use
  Company Number: JP-BAYER-2021A248526

PATIENT
  Age: 66 Year
  Sex: Male
  Weight: 66.5 kg

DRUGS (9)
  1. VERICIGUAT HYDROCHLORIDE [Suspect]
     Active Substance: VERICIGUAT HYDROCHLORIDE
     Indication: Cardiac failure
     Dosage: 2.5 MILLIGRAM, QD
     Route: 048
     Dates: start: 20211014, end: 20211030
  2. IVABRADINE HYDROCHLORIDE [Concomitant]
     Active Substance: IVABRADINE HYDROCHLORIDE
     Dosage: DAILY DOSE 15MG
     Dates: start: 20200618
  3. BISOPROLOL [Concomitant]
     Active Substance: BISOPROLOL
     Dosage: DAILY DOSE 1.25MG
     Dates: start: 20170412
  4. DAPAGLIFLOZIN [Concomitant]
     Active Substance: DAPAGLIFLOZIN
     Dosage: DAILY DOSE 10MG
     Dates: start: 20210125
  5. ESAXERENONE [Concomitant]
     Active Substance: ESAXERENONE
     Dosage: DAILY DOSE 2.5MG
     Dates: start: 20210125
  6. AMLODIPINE [Concomitant]
     Active Substance: AMLODIPINE BESYLATE
     Dosage: DAILY DOSE 5MG
     Dates: start: 20210225
  7. TORSEMIDE [Concomitant]
     Active Substance: TORSEMIDE
     Dosage: DAILY DOSE 2MG
     Dates: start: 20170412
  8. ENTRESTO [Concomitant]
     Active Substance: SACUBITRIL\VALSARTAN
     Dosage: DAILY DOSE 400MG
     Dates: start: 20200910
  9. POTASSIUM ASPARTATE [Concomitant]
     Active Substance: POTASSIUM ASPARTATE
     Dosage: DAILY DOSE 1200MG
     Dates: start: 20210729

REACTIONS (5)
  - Cardiac failure [Recovering/Resolving]
  - N-terminal prohormone brain natriuretic peptide increased [Recovering/Resolving]
  - Brain natriuretic peptide increased [Recovering/Resolving]
  - Malaise [Recovering/Resolving]
  - Micturition disorder [Recovered/Resolved]

NARRATIVE: CASE EVENT DATE: 20211001
